FAERS Safety Report 6477590-0 (Version None)
Quarter: 2009Q4

REPORT INFORMATION
  Report Type: 
  Country: None (occurrence: None)
  Receive Date: 20091207
  Receipt Date: 20091126
  Transmission Date: 20100525
  Serious: Yes (Other)
  Sender: FDA-Public Use
  Company Number: SE-ASTRAZENECA-2009SE29000

PATIENT
  Age: 27 Year
  Sex: Male

DRUGS (1)
  1. MARCAINE [Suspect]
     Indication: SPINAL ANAESTHESIA
     Dosage: 5 MG/ML SINGLE ADMINISTRATION
     Route: 037
     Dates: start: 20090920, end: 20090920

REACTIONS (2)
  - ARRHYTHMIA [None]
  - SYNCOPE [None]
